FAERS Safety Report 10156057 (Version 1)
Quarter: 2014Q2

REPORT INFORMATION
  Report Type: Report from Study
  Country: US (occurrence: US)
  Receive Date: 20140506
  Receipt Date: 20140506
  Transmission Date: 20141212
  Serious: Yes (Hospitalization)
  Sender: FDA-Public Use
  Company Number: PHEH2014US008911

PATIENT
  Age: 14 Year
  Sex: Male
  Weight: 35.37 kg

DRUGS (9)
  1. TOBI [Suspect]
     Indication: CYSTIC FIBROSIS
     Dosage: 300/5 MG/ML, BID
     Route: 055
  2. AZITHROMYCIN [Concomitant]
     Dosage: UNK
  3. PULMOZYME [Concomitant]
     Dosage: UNK
  4. ADEX [Concomitant]
     Dosage: UNK
  5. HYPERTONIC SALINE SOLUTION [Concomitant]
     Dosage: UNK
  6. VENTOLIN//SALBUTAMOL [Concomitant]
     Dosage: UNK
  7. CREON [Concomitant]
     Dosage: UNK
  8. CAYSTON [Concomitant]
     Dosage: UNK
  9. ALBUTEROL [Concomitant]
     Dosage: UNK

REACTIONS (2)
  - Condition aggravated [Recovered/Resolved]
  - Cystic fibrosis [Recovered/Resolved]
